FAERS Safety Report 25787007 (Version 3)
Quarter: 2025Q4

REPORT INFORMATION
  Report Type: Spontaneous
  Country: US (occurrence: US)
  Receive Date: 20250910
  Receipt Date: 20251204
  Transmission Date: 20260117
  Serious: Yes (Other)
  Sender: BAYER HEALTHCARE PHARMACEUTICALS INC.
  Company Number: US-BAYER-2025A118544

PATIENT
  Age: 41 Year
  Sex: Male

DRUGS (5)
  1. JIVI [Suspect]
     Active Substance: DAMOCTOCOG ALFA PEGOL
     Indication: Factor VIII deficiency
     Dosage: 1000 IU: INFUSE 4315 UNITS (3884-4746) SLOW IV, ONCE EVERY 5 DAYS AND DAILY
     Route: 042
     Dates: start: 201401
  2. JIVI [Suspect]
     Active Substance: DAMOCTOCOG ALFA PEGOL
     Indication: Haemorrhage
     Dosage: 3000 IU: INFUSE 4315 UNITS (3884-4746) SLOW IV, ONCE EVERY 5 DAYS AND DAILY
     Route: 042
     Dates: start: 201401
  3. JIVI [Suspect]
     Active Substance: DAMOCTOCOG ALFA PEGOL
     Indication: Factor VIII deficiency
     Dosage: 2 UNKNOWN DOSES USED
     Route: 042
     Dates: start: 20250902, end: 20250902
  4. JIVI [Suspect]
     Active Substance: DAMOCTOCOG ALFA PEGOL
     Indication: Factor VIII deficiency
     Dosage: JIVI 4000 IU~ INFUSED 4315 UNITS
     Route: 042
     Dates: start: 202303
  5. JIVI [Suspect]
     Active Substance: DAMOCTOCOG ALFA PEGOL
     Indication: Factor VIII deficiency
     Dosage: JIVI 2000IU~INFUSED 4315 UNITS EVERY 5 DAYS
     Route: 042
     Dates: start: 202503

REACTIONS (1)
  - Haemarthrosis [None]

NARRATIVE: CASE EVENT DATE: 20250902
